FAERS Safety Report 7366071-8 (Version None)
Quarter: 2011Q1

REPORT INFORMATION
  Report Type: 
  Country: None (occurrence: None)
  Receive Date: 20110322
  Receipt Date: 20110308
  Transmission Date: 20110831
  Serious: Yes (Hospitalization)
  Sender: FDA-Public Use
  Company Number: US-JNJFOC-20080306368

PATIENT
  Sex: Male
  Weight: 50 kg

DRUGS (4)
  1. ASPIRIN [Concomitant]
     Indication: ILL-DEFINED DISORDER
     Route: 048
  2. REMICADE [Suspect]
     Indication: CROHN'S DISEASE
     Dosage: TOTAL 6 DOSES
     Route: 042
  3. HUMIRA [Concomitant]
     Indication: ILL-DEFINED DISORDER
  4. REMICADE [Suspect]
     Route: 042

REACTIONS (1)
  - VIRAL INFECTION [None]
